FAERS Safety Report 6819865-9 (Version None)
Quarter: 2010Q3

REPORT INFORMATION
  Report Type: 
  Country: None (occurrence: None)
  Receive Date: 20100707
  Receipt Date: 20100628
  Transmission Date: 20110219
  Serious: Yes (Other)
  Sender: FDA-Public Use
  Company Number: DE-SANOFI-AVENTIS-2010SA037014

PATIENT
  Sex: Female

DRUGS (3)
  1. DRONEDARONE HCL [Suspect]
     Indication: ATRIAL FIBRILLATION
     Dosage: DAILY DOSE: 800 MG MILLIGRAM(S) EVERY DAY
     Route: 048
     Dates: start: 20100401, end: 20100501
  2. ACETYLSALICYLIC ACID [Concomitant]
     Indication: ATRIAL FIBRILLATION
     Dosage: DAILY DOSE: 100 MG MILLIGRAM(S) EVERY DAY
     Route: 048
     Dates: start: 20100401
  3. METOPROLOL SUCCINATE [Concomitant]
     Indication: ATRIAL FIBRILLATION
     Dosage: DAILY DOSE: 47.5 MG MILLIGRAM(S) EVERY DAY
     Route: 048
     Dates: start: 20100401

REACTIONS (1)
  - HEPATITIS TOXIC [None]
